FAERS Safety Report 10924336 (Version 1)
Quarter: 2015Q1

REPORT INFORMATION
  Report Type: Spontaneous
  Country: US (occurrence: None)
  Receive Date: 20150202
  Receipt Date: 20150202
  Transmission Date: 20150721
  Serious: Yes (Hospitalization)
  Sender: FDA-Public Use
  Company Number: TPA2011A02062

PATIENT
  Sex: Female

DRUGS (2)
  1. DEXILANT [Suspect]
     Active Substance: DEXLANSOPRAZOLE
     Indication: OROPHARYNGEAL PAIN
  2. DEXILANT [Suspect]
     Active Substance: DEXLANSOPRAZOLE
     Indication: COUGH

REACTIONS (28)
  - Urticaria [None]
  - Chest discomfort [None]
  - Dry skin [None]
  - Dyspnoea [None]
  - Pharyngeal oedema [None]
  - Swollen tongue [None]
  - Stridor [None]
  - Vomiting [None]
  - Swelling [None]
  - Pruritus [None]
  - Pain [None]
  - Generalised erythema [None]
  - Hypersensitivity [None]
  - Wheezing [None]
  - Heart rate increased [None]
  - Oropharyngeal discomfort [None]
  - Fatigue [None]
  - Asthenia [None]
  - Rash [None]
  - Oedema mouth [None]
  - Swelling face [None]
  - Tenderness [None]
  - Hypoaesthesia [None]
  - Dizziness [None]
  - Local swelling [None]
  - Lip swelling [None]
  - Feeling hot [None]
  - Chest pain [None]
